FAERS Safety Report 18593325 (Version 3)
Quarter: 2021Q1

REPORT INFORMATION
  Report Type: Spontaneous
  Country: US (occurrence: US)
  Receive Date: 20201208
  Receipt Date: 20210120
  Transmission Date: 20210419
  Serious: No
  Sender: FDA-Public Use
  Company Number: US-JNJFOC-20201207253

PATIENT
  Sex: Female

DRUGS (1)
  1. TREMFYA [Suspect]
     Active Substance: GUSELKUMAB
     Indication: PSORIASIS
     Dosage: SECOND DOSE ON 01?DEC?2020
     Route: 058
     Dates: start: 2020

REACTIONS (6)
  - Device leakage [Unknown]
  - Needle issue [Unknown]
  - Accidental exposure to product [Unknown]
  - Psoriasis [Unknown]
  - Product dose omission issue [Unknown]
  - Product label issue [Unknown]

NARRATIVE: CASE EVENT DATE: 20201201
